FAERS Safety Report 8008669-X (Version None)
Quarter: 2011Q4

REPORT INFORMATION
  Report Type: 
  Country: None (occurrence: None)
  Receive Date: 20111227
  Receipt Date: 20111216
  Transmission Date: 20120403
  Serious: Yes (Death, Life-Threatening, Hospitalization, Disabling)
  Sender: FDA-Public Use
  Company Number: JP-MERCK-1105USA03110

PATIENT
  Age: 78 Year
  Sex: Male
  Weight: 64 kg

DRUGS (8)
  1. JANUVIA [Suspect]
     Indication: TYPE 2 DIABETES MELLITUS
     Route: 048
     Dates: start: 20110210, end: 20110421
  2. ALLOPURINOL [Concomitant]
     Indication: HYPERURICAEMIA
     Route: 048
     Dates: start: 20030327, end: 20110421
  3. METHYCOBAL [Concomitant]
     Indication: DEMENTIA ALZHEIMER'S TYPE
     Route: 048
     Dates: start: 20110120, end: 20110421
  4. FOLIC ACID [Concomitant]
     Indication: DEMENTIA ALZHEIMER'S TYPE
     Route: 048
     Dates: start: 20110120, end: 20110421
  5. ARICEPT [Suspect]
     Indication: DEMENTIA ALZHEIMER'S TYPE
     Dosage: DAILY DOSAGE UNKNOWN. 3MG X 1 / 5MG X 1
     Route: 048
     Dates: start: 20110120, end: 20110421
  6. BUFFERIN [Concomitant]
     Indication: CAROTID ARTERY STENOSIS
     Route: 048
     Dates: start: 20010920, end: 20110421
  7. AMARYL [Concomitant]
     Indication: TYPE 2 DIABETES MELLITUS
     Route: 048
     Dates: start: 20010808, end: 20110421
  8. REZALTAS [Suspect]
     Indication: HYPERTENSION
     Route: 048
     Dates: start: 20110317, end: 20110421

REACTIONS (17)
  - DIFFUSE ALVEOLAR DAMAGE [None]
  - RENAL DISORDER [None]
  - DRUG INEFFECTIVE [None]
  - CARBOHYDRATE ANTIGEN 19-9 INCREASED [None]
  - CYTOMEGALOVIRUS INFECTION [None]
  - INTERSTITIAL LUNG DISEASE [None]
  - LIVER DISORDER [None]
  - PNEUMOMEDIASTINUM [None]
  - SHOCK [None]
  - DISSEMINATED INTRAVASCULAR COAGULATION [None]
  - HAEMORRHAGIC DIATHESIS [None]
  - ACUTE RESPIRATORY DISTRESS SYNDROME [None]
  - CARCINOEMBRYONIC ANTIGEN INCREASED [None]
  - HEPATORENAL FAILURE [None]
  - DELIRIUM [None]
  - DECREASED APPETITE [None]
  - PSEUDOMONAS INFECTION [None]
